FAERS Safety Report 4891026-2 (Version None)
Quarter: 2006Q1

REPORT INFORMATION
  Report Type: 
  Country: None (occurrence: None)
  Receive Date: 20060125
  Receipt Date: 20060109
  Transmission Date: 20060701
  Serious: Yes (Death, Hospitalization)
  Sender: FDA-Public Use
  Company Number: 2006SE00128

PATIENT
  Age: 813 Month
  Sex: Male
  Weight: 61 kg

DRUGS (7)
  1. BLOPRESS [Suspect]
     Indication: HYPERTENSION
     Route: 048
     Dates: start: 20030516, end: 20050929
  2. BLOPRESS [Suspect]
     Route: 048
     Dates: start: 20050930, end: 20051125
  3. BASEN TABLETS 0.3 [Concomitant]
     Indication: DIABETES MELLITUS NON-INSULIN-DEPENDENT
     Route: 048
     Dates: end: 20051125
  4. AMLODIN [Concomitant]
     Indication: HYPERTENSION
     Route: 048
     Dates: start: 20030905, end: 20051125
  5. NOVOLIN N [Concomitant]
     Indication: DIABETES MELLITUS NON-INSULIN-DEPENDENT
     Route: 058
     Dates: end: 20051125
  6. HARNAL D [Concomitant]
     Indication: BENIGN PROSTATIC HYPERPLASIA
     Route: 048
     Dates: end: 20051125
  7. MINIPRESS [Concomitant]
     Indication: BENIGN PROSTATIC HYPERPLASIA
     Route: 048
     Dates: start: 20030606, end: 20051125

REACTIONS (3)
  - ACUTE MYOCARDIAL INFARCTION [None]
  - DIABETIC NEPHROPATHY [None]
  - MYOCARDIAL INFARCTION [None]
